FAERS Safety Report 8173176-0 (Version None)
Quarter: 2012Q1

REPORT INFORMATION
  Report Type: 
  Country: None (occurrence: None)
  Receive Date: 20120229
  Receipt Date: 20110520
  Transmission Date: 20120608
  Serious: No
  Sender: FDA-Public Use
  Company Number: US-GLAXOSMITHKLINE-A0928357A

PATIENT
  Age: 48 Year
  Sex: Female

DRUGS (6)
  1. IMITREX [Suspect]
     Indication: OCCIPITAL NEURALGIA
     Dosage: 1INJ AS REQUIRED
     Route: 058
     Dates: start: 20070501
  2. CYMBALTA [Concomitant]
  3. TRAZODONE HCL [Concomitant]
  4. FORVIA [Concomitant]
  5. BUTALBITAL [Concomitant]
  6. ZOFRAN [Concomitant]

REACTIONS (1)
  - MIGRAINE [None]
